FAERS Safety Report 7760337-5 (Version None)
Quarter: 2011Q3

REPORT INFORMATION
  Report Type: 
  Country: None (occurrence: None)
  Receive Date: 20110919
  Receipt Date: 20110914
  Transmission Date: 20111222
  Serious: Yes (Other)
  Sender: FDA-Public Use
  Company Number: GR-PFIZER INC-2011216618

PATIENT
  Age: 86 Year
  Sex: Female

DRUGS (2)
  1. TOLTERODINE TARTRATE [Suspect]
     Dosage: 4 MG, UNK
     Dates: start: 20110101, end: 20110901
  2. TOLTERODINE TARTRATE [Suspect]
     Indication: URINARY INCONTINENCE
     Dosage: 2 MG, UNK
     Dates: start: 20090101, end: 20110101

REACTIONS (10)
  - DYSPNOEA [None]
  - DRY SKIN [None]
  - DYSPEPSIA [None]
  - TREMOR [None]
  - PALPITATIONS [None]
  - DRY EYE [None]
  - FATIGUE [None]
  - DRUG INEFFECTIVE [None]
  - DIZZINESS [None]
  - DYSURIA [None]
